FAERS Safety Report 19992363 (Version 9)
Quarter: 2022Q1

REPORT INFORMATION
  Report Type: Report from Study
  Country: CN (occurrence: None)
  Receive Date: 20211025
  Receipt Date: 20220108
  Transmission Date: 20220423
  Serious: Yes (Hospitalization)
  Sender: FDA-Public Use
  Company Number: CN-ROCHE-2940621

PATIENT
  Age: 55 Year
  Sex: Male
  Weight: 76 kg

DRUGS (18)
  1. ATEZOLIZUMAB [Suspect]
     Active Substance: ATEZOLIZUMAB
     Indication: Hepatocellular carcinoma
     Dosage: DOSE LAST STUDY DRUG ADMIN PRIOR AE: 1200 MG?ON 24/SEP/2021, HE RECEIVED MOST RECENT DOSE OF ATEZOLI
     Route: 042
     Dates: start: 20210812
  2. BEVACIZUMAB [Suspect]
     Active Substance: BEVACIZUMAB
     Indication: Hepatocellular carcinoma
     Dosage: DOSE LAST STUDY DRUG ADMIN PRIOR AE: 1200 MG?ON 24/SEP/2021, HE RECEIVED MOST RECENT DOSE OF BEVACIZ
     Route: 042
     Dates: start: 20210812
  3. CEFTAZIDIME [Concomitant]
     Active Substance: CEFTAZIDIME
     Indication: Prophylaxis
     Dates: start: 20211007, end: 20211007
  4. CEFTAZIDIME [Concomitant]
     Active Substance: CEFTAZIDIME
     Dates: start: 20211019, end: 20211021
  5. CEFTAZIDIME [Concomitant]
     Active Substance: CEFTAZIDIME
     Dates: start: 20211013, end: 20211018
  6. CEFTAZIDIME [Concomitant]
     Active Substance: CEFTAZIDIME
     Route: 042
     Dates: start: 20211018, end: 20211021
  7. ENTECAVIR [Concomitant]
     Active Substance: ENTECAVIR
     Dates: start: 20210719
  8. DICLOFENAC SODIUM [Concomitant]
     Active Substance: DICLOFENAC SODIUM
     Indication: Analgesic therapy
     Dates: start: 20211014, end: 20211014
  9. FOSFOMYCIN TROMETHAMINE [Concomitant]
     Active Substance: FOSFOMYCIN TROMETHAMINE
     Dates: start: 20211114, end: 20211114
  10. FUROSEMIDE [Concomitant]
     Active Substance: FUROSEMIDE
     Indication: Polyuria
     Dates: start: 20211016, end: 20211018
  11. PHLOROGLUCINOL [Concomitant]
     Active Substance: PHLOROGLUCINOL
     Indication: Analgesic therapy
     Dates: start: 20211113, end: 20211118
  12. NIFEDIPINE [Concomitant]
     Active Substance: NIFEDIPINE
     Indication: Hypertension
     Dates: start: 20211013, end: 20211020
  13. FOSFOMYCIN [Concomitant]
     Active Substance: FOSFOMYCIN
     Dates: start: 20211014, end: 20211014
  14. SPIRONOLACTONE [Concomitant]
     Active Substance: SPIRONOLACTONE
     Indication: Polyuria
     Route: 048
     Dates: start: 20211018, end: 20211104
  15. SPIRONOLACTONE [Concomitant]
     Active Substance: SPIRONOLACTONE
     Dates: start: 20211105
  16. IRBESARTAN [Concomitant]
     Active Substance: IRBESARTAN
     Indication: Hypertension
     Dates: start: 20211029
  17. METOPROLOL [Concomitant]
     Active Substance: METOPROLOL
     Indication: Hypertension
     Dates: start: 20210918, end: 20211104
  18. METOPROLOL [Concomitant]
     Active Substance: METOPROLOL
     Dates: start: 20211105

REACTIONS (2)
  - Localised oedema [Recovered/Resolved]
  - Hydrothorax [Recovered/Resolved]

NARRATIVE: CASE EVENT DATE: 20211016
